FAERS Safety Report 9885453 (Version 2)
Quarter: 2014Q1

REPORT INFORMATION
  Report Type: Spontaneous
  Country: FR (occurrence: FR)
  Receive Date: 20140210
  Receipt Date: 20140210
  Transmission Date: 20141002
  Serious: Yes (Other)
  Sender: FDA-Public Use
  Company Number: FR-009507513-1401FRA012815

PATIENT
  Sex: Female

DRUGS (1)
  1. NUVARING [Suspect]
     Indication: CONTRACEPTION
     Dosage: UNK
     Route: 067
     Dates: start: 201301

REACTIONS (3)
  - Unintended pregnancy [Recovered/Resolved]
  - Abortion spontaneous [Unknown]
  - Blighted ovum [Unknown]
